FAERS Safety Report 18473892 (Version 1)
Quarter: 2020Q4

REPORT INFORMATION
  Report Type: Spontaneous
  Country: US (occurrence: US)
  Receive Date: 20201106
  Receipt Date: 20201106
  Transmission Date: 20210114
  Serious: Yes (Other)
  Sender: FDA-Public Use
  Company Number: US-ASTRAZENECA-2020SF43880

PATIENT

DRUGS (3)
  1. PRILOSEC [Suspect]
     Active Substance: OMEPRAZOLE MAGNESIUM
     Dosage: FOR MULTIPLE YEARS BEGINNING IN APPROXIMATELY 2004
     Route: 048
  2. PRILOSEC [Suspect]
     Active Substance: OMEPRAZOLE MAGNESIUM
     Dosage: GENERIC. FOR MULTIPLE YEARS BEGINNING IN APPROXIMATELY 2004
     Route: 065
  3. PANTOPRAZOLE [Suspect]
     Active Substance: PANTOPRAZOLE
     Dosage: FOR MULTIPLE YEARS BEGINNING IN APPROXIMATELY 2004
     Route: 065

REACTIONS (2)
  - Gastric cancer [Unknown]
  - Rebound acid hypersecretion [Unknown]
